FAERS Safety Report 11120670 (Version 2)
Quarter: 2015Q2

REPORT INFORMATION
  Report Type: Spontaneous
  Country: GB (occurrence: GB)
  Receive Date: 20150519
  Receipt Date: 20150526
  Transmission Date: 20150821
  Serious: Yes (Life-Threatening, Disabling, Other)
  Sender: FDA-Public Use
  Company Number: GB-BAYER-2015-204000

PATIENT
  Age: 38 Year
  Sex: Female

DRUGS (1)
  1. MIRENA [Suspect]
     Active Substance: LEVONORGESTREL
     Indication: CONTRACEPTION
     Dosage: 20 MCG/24HR, CONT
     Route: 015
     Dates: start: 20061218, end: 20070518

REACTIONS (2)
  - Breast cancer [Recovered/Resolved with Sequelae]
  - Breast mass [Recovered/Resolved with Sequelae]

NARRATIVE: CASE EVENT DATE: 20070512
